FAERS Safety Report 5796762-1 (Version None)
Quarter: 2008Q3

REPORT INFORMATION
  Report Type: 
  Country: None (occurrence: None)
  Receive Date: 20080701
  Receipt Date: 20080625
  Transmission Date: 20090109
  Serious: Yes (Disabling)
  Sender: FDA-Public Use
  Company Number: JP-BRISTOL-MYERS SQUIBB COMPANY-14245682

PATIENT
  Age: 74 Year
  Sex: Male

DRUGS (6)
  1. BRIPLATIN [Suspect]
     Indication: PLEURAL MESOTHELIOMA MALIGNANT
     Dosage: THERAPY DATES: 90MG/MONTH ON 08JUN07 AND 29-JUN-07; 75MG/MONTH FROM 26JUL07 TO 11SEP07
     Route: 041
     Dates: start: 20070608, end: 20070608
  2. ALIMTA [Suspect]
     Indication: PLEURAL MESOTHELIOMA MALIGNANT
     Dosage: THERAPY DATES: 750MG/MONTH ON 08JUN07 AND 29-JUN-07; 560MG/MONTH FROM 26JUL07 TO 11SEP07
     Route: 041
     Dates: start: 20070608, end: 20070608
  3. PANVITAN [Concomitant]
     Route: 048
     Dates: start: 20070530, end: 20071205
  4. CYANOCOBALAMIN [Concomitant]
     Route: 030
     Dates: start: 20070530, end: 20071005
  5. MAGMITT [Concomitant]
     Route: 048
  6. GLYSENNID [Concomitant]
     Route: 048

REACTIONS (5)
  - ANAEMIA [None]
  - HYPERKALAEMIA [None]
  - HYPOAESTHESIA [None]
  - MALAISE [None]
  - PLATELET COUNT DECREASED [None]
